FAERS Safety Report 20681784 (Version 1)
Quarter: 2022Q2

REPORT INFORMATION
  Report Type: Spontaneous
  Country: CN (occurrence: CN)
  Receive Date: 20220407
  Receipt Date: 20220407
  Transmission Date: 20220720
  Serious: Yes (Hospitalization, Other)
  Sender: FDA-Public Use
  Company Number: CN-SUN PHARMACEUTICAL INDUSTRIES LTD-2022R1-331659

PATIENT
  Age: 66 Year
  Sex: Male

DRUGS (1)
  1. QUETIAPINE [Suspect]
     Active Substance: QUETIAPINE
     Indication: Product used for unknown indication
     Dosage: UNK (20 TABLETS, 200 MG)
     Route: 065

REACTIONS (3)
  - Delirium [Recovering/Resolving]
  - Toxicity to various agents [Unknown]
  - Acute lung injury [Recovering/Resolving]

NARRATIVE: CASE EVENT DATE: 20160405
